FAERS Safety Report 13265926 (Version 3)
Quarter: 2017Q1

REPORT INFORMATION
  Report Type: Spontaneous
  Country: JP (occurrence: JP)
  Receive Date: 20170223
  Receipt Date: 20170330
  Transmission Date: 20170428
  Serious: Yes (Death, Life-Threatening, Hospitalization, Other)
  Sender: FDA-Public Use
  Company Number: JP-ELI_LILLY_AND_COMPANY-JP201702000625

PATIENT
  Age: 71 Year
  Sex: Male
  Weight: 66 kg

DRUGS (7)
  1. PACLITAXEL. [Suspect]
     Active Substance: PACLITAXEL
     Indication: OROPHARYNGEAL CANCER RECURRENT
     Dosage: 130 MG, WEEKLY (1/W)
     Route: 042
     Dates: start: 20161014, end: 20161021
  2. ELIQUIS [Concomitant]
     Active Substance: APIXABAN
     Indication: ATRIAL FIBRILLATION
     Dosage: UNK UNK, UNKNOWN
     Route: 048
  3. ERBITUX [Suspect]
     Active Substance: CETUXIMAB
     Indication: OROPHARYNGEAL CANCER RECURRENT
     Dosage: 680 MG, UNKNOWN
     Route: 042
     Dates: start: 20161014, end: 20170118
  4. PACLITAXEL. [Suspect]
     Active Substance: PACLITAXEL
     Dosage: 60 MG, WEEKLY (1/W)
     Route: 042
     Dates: start: 20161214, end: 20170118
  5. ERBITUX [Suspect]
     Active Substance: CETUXIMAB
     Dosage: 400 MG, WEEKLY (1/W)
     Route: 042
     Dates: start: 20161021, end: 20161125
  6. ERBITUX [Suspect]
     Active Substance: CETUXIMAB
     Dosage: 300 MG, WEEKLY (1/W)
     Route: 042
     Dates: start: 20161214, end: 20170118
  7. PACLITAXEL. [Suspect]
     Active Substance: PACLITAXEL
     Dosage: 60 MG, UNK
     Route: 042
     Dates: start: 20161118, end: 20161118

REACTIONS (4)
  - Neutrophil count decreased [Recovering/Resolving]
  - Interstitial lung disease [Fatal]
  - Dermatitis acneiform [Not Recovered/Not Resolved]
  - Off label use [Unknown]

NARRATIVE: CASE EVENT DATE: 20161028
